FAERS Safety Report 19515034 (Version 1)
Quarter: 2021Q3

REPORT INFORMATION
  Report Type: Spontaneous
  Country: US (occurrence: US)
  Receive Date: 20210709
  Receipt Date: 20210709
  Transmission Date: 20211014
  Serious: No
  Sender: FDA-Public Use
  Company Number: US-SA-2021SA216658

PATIENT
  Age: 91 Year
  Sex: Female

DRUGS (2)
  1. TOUJEO [Suspect]
     Active Substance: INSULIN GLARGINE
  2. TRESIBA [Suspect]
     Active Substance: INSULIN DEGLUDEC

REACTIONS (1)
  - Product prescribing issue [Unknown]
